FAERS Safety Report 5564225-4 (Version None)
Quarter: 2007Q4

REPORT INFORMATION
  Report Type: 
  Country: None (occurrence: None)
  Receive Date: 20071212
  Receipt Date: 20071130
  Transmission Date: 20080405
  Serious: Yes (Life-Threatening, Hospitalization)
  Sender: FDA-Public Use
  Company Number: 2007AL005117

PATIENT
  Age: 68 Year
  Sex: Female

DRUGS (12)
  1. NIFEDIPINE CAPSULES USP, 10 MG (PEG FORMULATION) (PUREPAC) (NIFEDIPINE [Suspect]
     Indication: HYPERTENSION
     Dosage: 30 MG; QAM; PO
     Route: 048
     Dates: end: 20071024
  2. ATENOLOL [Concomitant]
  3. GLYBURIDE [Concomitant]
  4. SALICYLIC ACID [Concomitant]
  5. ATORVASTATIN [Concomitant]
  6. AMITRIPTLINE HCL [Concomitant]
  7. INSULATARD [Concomitant]
  8. IBUPROFEN [Concomitant]
  9. CO-PROXAMOL [Concomitant]
  10. COD LIVER OIL [Concomitant]
  11. METFORMIN HCL [Concomitant]
  12. CO-AMILOFRUSE [Concomitant]

REACTIONS (5)
  - ATRIOVENTRICULAR BLOCK COMPLETE [None]
  - BLOOD GLUCOSE INCREASED [None]
  - HYPOTENSION [None]
  - LACTIC ACIDOSIS [None]
  - MALAISE [None]
